FAERS Safety Report 18373935 (Version 1)
Quarter: 2020Q4

REPORT INFORMATION
  Report Type: Spontaneous
  Country: US (occurrence: US)
  Receive Date: 20201012
  Receipt Date: 20201012
  Transmission Date: 20210114
  Serious: No
  Sender: FDA-Public Use
  Company Number: US-BAYER-2020-214241

PATIENT
  Age: 38 Year
  Sex: Female

DRUGS (1)
  1. SKYLA [Suspect]
     Active Substance: LEVONORGESTREL
     Indication: ANAEMIA
     Dosage: 14 ?G PER DAY, CONTINUOUSLY
     Route: 015
     Dates: start: 202001

REACTIONS (6)
  - Device use issue [None]
  - Fatigue [None]
  - Insomnia [None]
  - Migraine [None]
  - Off label use [None]
  - Amenorrhoea [None]

NARRATIVE: CASE EVENT DATE: 202001
